FAERS Safety Report 6877847-5 (Version None)
Quarter: 2010Q3

REPORT INFORMATION
  Report Type: 
  Country: None (occurrence: None)
  Receive Date: 20100727
  Receipt Date: 20070712
  Transmission Date: 20110219
  Serious: Yes (Hospitalization, Other)
  Sender: FDA-Public Use
  Company Number: US-PFIZER INC-2007016591

PATIENT
  Sex: Female
  Weight: 65.8 kg

DRUGS (2)
  1. CELEBREX [Suspect]
     Indication: ARTHRITIS
     Route: 048
     Dates: start: 19990802, end: 20050622
  2. CELEBREX [Suspect]
     Indication: BACK PAIN

REACTIONS (6)
  - ARTERIAL OCCLUSIVE DISEASE [None]
  - HEADACHE [None]
  - HYPERTENSION [None]
  - MYOCARDIAL INFARCTION [None]
  - SYNCOPE [None]
  - VISION BLURRED [None]
